FAERS Safety Report 16838710 (Version 1)
Quarter: 2019Q3

REPORT INFORMATION
  Report Type: Spontaneous
  Country: US (occurrence: US)
  Receive Date: 20190923
  Receipt Date: 20190923
  Transmission Date: 20191005
  Serious: No
  Sender: FDA-Public Use
  Company Number: US-VERTEX PHARMACEUTICALS-2019-008877

PATIENT
  Age: 14 Year
  Sex: Female

DRUGS (3)
  1. ORKAMBI [Suspect]
     Active Substance: IVACAFTOR\LUMACAFTOR
     Dosage: 2 DOSAGE FORM (100/125 MG), BID
     Route: 048
     Dates: start: 20190912, end: 20190913
  2. PULMOZYME [Concomitant]
     Active Substance: DORNASE ALFA
  3. ORKAMBI [Suspect]
     Active Substance: IVACAFTOR\LUMACAFTOR
     Indication: CYSTIC FIBROSIS
     Dosage: 200/ 125MG TABLETS
     Route: 048
     Dates: start: 20171026, end: 2019

REACTIONS (2)
  - Product dispensing error [Recovered/Resolved]
  - Incorrect dose administered [Recovered/Resolved]

NARRATIVE: CASE EVENT DATE: 20190912
